FAERS Safety Report 19868378 (Version 1)
Quarter: 2021Q3

REPORT INFORMATION
  Report Type: Report from Study
  Country: FR (occurrence: FR)
  Receive Date: 20210921
  Receipt Date: 20210921
  Transmission Date: 20211014
  Serious: Yes (Hospitalization)
  Sender: FDA-Public Use
  Company Number: FR-SERVIER-S21010400

PATIENT

DRUGS (10)
  1. TN UNSPECIFIED [Concomitant]
     Indication: ACUTE LYMPHOCYTIC LEUKAEMIA
     Dosage: 12 MG, D4, D31
     Route: 037
     Dates: start: 20201224, end: 20210120
  2. TN UNSPECIFIED [Concomitant]
     Indication: ACUTE LYMPHOCYTIC LEUKAEMIA
     Dosage: 30 MG, D4, D31
     Route: 037
     Dates: start: 20201224, end: 20210120
  3. TN UNSPECIFIED [Concomitant]
     Indication: ACUTE LYMPHOCYTIC LEUKAEMIA
     Dosage: 6.5 MG, D1 TO D7, D15 TO D21
     Route: 048
     Dates: start: 20201221, end: 20210110
  4. TN UNSPECIFIED [Concomitant]
     Indication: ACUTE LYMPHOCYTIC LEUKAEMIA
     Dosage: 40 MG, D29 TO D42
     Route: 048
     Dates: start: 20210118, end: 20210130
  5. TN UNSPECIFIED [Concomitant]
     Indication: ACUTE LYMPHOCYTIC LEUKAEMIA
     Dosage: 1 MG, D1, D8, D15, D43, D50
     Route: 042
     Dates: start: 20201222, end: 20210209
  6. PEGASPARGASE [Suspect]
     Active Substance: PEGASPARGASE
     Indication: ACUTE LYMPHOCYTIC LEUKAEMIA
     Dosage: 1650 IU, D4, D43
     Route: 042
     Dates: start: 20201224, end: 20210202
  7. TN UNSPECIFIED [Concomitant]
     Indication: ACUTE LYMPHOCYTIC LEUKAEMIA
     Dosage: 660 MG, D29
     Route: 042
     Dates: start: 20210118
  8. ADRIAMYCIN [Concomitant]
     Active Substance: DOXORUBICIN HYDROCHLORIDE
     Indication: ACUTE LYMPHOCYTIC LEUKAEMIA
     Dosage: 16.4 MG, D1, D8, D15
     Route: 042
     Dates: start: 20201221, end: 20210104
  9. TN UNSPECIFIED [Concomitant]
     Indication: ACUTE LYMPHOCYTIC LEUKAEMIA
     Dosage: 15 MG, D4, D31
     Route: 037
     Dates: start: 20201224, end: 20210120
  10. TN UNSPECIFIED [Concomitant]
     Dosage: 49 MG, D31 TO D34, D38 TO D41
     Route: 042
     Dates: start: 20210120, end: 20210130

REACTIONS (1)
  - Bacterial sepsis [Not Recovered/Not Resolved]

NARRATIVE: CASE EVENT DATE: 20210130
